FAERS Safety Report 10028423 (Version 2)
Quarter: 2014Q1

REPORT INFORMATION
  Report Type: Spontaneous
  Country: US (occurrence: None)
  Receive Date: 20140307
  Receipt Date: 20140311
  Transmission Date: 20141002
  Serious: Yes (Other)
  Sender: FDA-Public Use
  Company Number: SYM-2014-17961

PATIENT
  Age: 28 Year
  Sex: Male

DRUGS (5)
  1. VENLAFAXINE [Suspect]
     Indication: SCHIZOPHRENIA
  2. OXCARBAZEPINE [Suspect]
     Indication: SCHIZOPHRENIA
  3. LURASIDONE [Suspect]
     Indication: SCHIZOPHRENIA
  4. METHAMPHETAMINE [Suspect]
     Indication: PRODUCT USED FOR UNKNOWN INDICATION
  5. B-CYFLUTHRIN [Suspect]
     Indication: PRODUCT USED FOR UNKNOWN INDICATION
     Route: 042

REACTIONS (3)
  - Sinus tachycardia [None]
  - Drug screen positive [None]
  - Toxicity to various agents [None]
